FAERS Safety Report 4920187-1 (Version None)
Quarter: 2006Q1

REPORT INFORMATION
  Report Type: 
  Country: None (occurrence: None)
  Receive Date: 20060223
  Receipt Date: 20050204
  Transmission Date: 20060701
  Serious: Yes (Hospitalization)
  Sender: FDA-Public Use
  Company Number: 2005UW02011

PATIENT
  Age: 32756 Day
  Sex: Female

DRUGS (10)
  1. SEROQUEL [Suspect]
     Indication: AGITATION
     Route: 048
     Dates: start: 20050114, end: 20050114
  2. SEROQUEL [Suspect]
     Indication: DELIRIUM
     Route: 048
     Dates: start: 20050114, end: 20050114
  3. ALBUTEROL [Concomitant]
  4. AZITHROMYCIN [Concomitant]
     Indication: PNEUMONIA
     Route: 048
     Dates: start: 20050112
  5. CEFTRIAXONE [Concomitant]
     Indication: PNEUMONIA
     Route: 042
     Dates: start: 20050112
  6. HEPARIN [Concomitant]
     Indication: THROMBOSIS PROPHYLAXIS
     Route: 058
     Dates: start: 20050112
  7. MECLIZINE [Concomitant]
     Dates: start: 20050112
  8. PANTOPRAZOLE [Concomitant]
     Dates: start: 20050112
  9. PREDNISONE [Concomitant]
     Dates: start: 20050112
  10. HALDOL [Concomitant]

REACTIONS (6)
  - ACUTE RESPIRATORY FAILURE [None]
  - BLOOD GLUCOSE INCREASED [None]
  - BLOOD PRESSURE INCREASED [None]
  - DEPRESSED LEVEL OF CONSCIOUSNESS [None]
  - HEART RATE INCREASED [None]
  - RESPIRATORY ACIDOSIS [None]
